FAERS Safety Report 5318506-X (Version None)
Quarter: 2007Q2

REPORT INFORMATION
  Report Type: 
  Country: None (occurrence: None)
  Receive Date: 20070501
  Receipt Date: 20070416
  Transmission Date: 20071010
  Serious: Yes (Hospitalization)
  Sender: FDA-Public Use
  Company Number: S07-FRA-01358-01

PATIENT
  Age: 26 Year
  Sex: Female

DRUGS (9)
  1. ESCITALOPRAM [Suspect]
     Dates: start: 20070214, end: 20070216
  2. LEVOTHYROXINE SODIUM [Suspect]
     Indication: HYPOTHYROIDISM
     Dosage: 125 MCG QD PO
     Route: 048
  3. SULFASALAZINE [Suspect]
     Dosage: 1000 MG BID PO
     Route: 048
     Dates: start: 20070109, end: 20070219
  4. LAMALINE [Suspect]
     Dates: start: 20070214, end: 20070216
  5. CHRONO INDOCID (INDOMETHACIN) [Suspect]
     Indication: BONE PAIN
     Dosage: 75 MG BID PO
     Route: 048
     Dates: start: 20070101, end: 20070219
  6. PANOS (TETRAZEPAM) [Suspect]
     Dosage: 50 MG, PO
     Route: 048
  7. MOPRAL (OMEPRAZOLE) [Concomitant]
  8. DAIVOBET (BETHAMETHASONE DIPROPIONATE) [Concomitant]
  9. PYOSTACINE (PRISTINAMYCIN) [Concomitant]

REACTIONS (13)
  - CHOLESTASIS [None]
  - CYTOLYTIC HEPATITIS [None]
  - CYTOMEGALOVIRUS ANTIBODY POSITIVE [None]
  - DISEASE RECURRENCE [None]
  - DRUG RASH WITH EOSINOPHILIA AND SYSTEMIC SYMPTOMS [None]
  - EPSTEIN-BARR VIRUS ANTIBODY POSITIVE [None]
  - HEPATIC NEOPLASM [None]
  - LYMPHADENOPATHY [None]
  - OXYGEN SATURATION DECREASED [None]
  - PROTEIN TOTAL INCREASED [None]
  - PUSTULAR PSORIASIS [None]
  - RENAL FAILURE ACUTE [None]
  - SPLENOMEGALY [None]
